FAERS Safety Report 5814360-8 (Version None)
Quarter: 2008Q3

REPORT INFORMATION
  Report Type: 
  Country: None (occurrence: None)
  Receive Date: 20080717
  Receipt Date: 20080710
  Transmission Date: 20090109
  Serious: Yes (Death, Hospitalization)
  Sender: FDA-Public Use
  Company Number: DE-SANOFI-SYNTHELABO-F01200800462

PATIENT

DRUGS (3)
  1. CAPECITABINE [Suspect]
     Dosage: UNK
     Route: 048
     Dates: start: 20080305, end: 20080305
  2. AVASTIN [Suspect]
     Dosage: UNK
     Route: 042
     Dates: start: 20080305, end: 20080305
  3. OXALIPLATIN [Suspect]
     Indication: COLORECTAL CANCER METASTATIC
     Dosage: UNK
     Route: 041
     Dates: start: 20080305, end: 20080305

REACTIONS (5)
  - ALANINE AMINOTRANSFERASE INCREASED [None]
  - BLOOD AMYLASE INCREASED [None]
  - BLOOD BILIRUBIN INCREASED [None]
  - DISEASE PROGRESSION [None]
  - HEPATIC FAILURE [None]
